FAERS Safety Report 17654550 (Version 2)
Quarter: 2020Q2

REPORT INFORMATION
  Report Type: Spontaneous
  Country: US (occurrence: US)
  Receive Date: 20200410
  Receipt Date: 20200515
  Transmission Date: 20200713
  Serious: No
  Sender: FDA-Public Use
  Company Number: US-GLAXOSMITHKLINE-US2020AMR059007

PATIENT
  Sex: Female

DRUGS (1)
  1. ZEJULA [Suspect]
     Active Substance: NIRAPARIB
     Indication: OVARIAN CANCER
     Dosage: 200 MG, QD
     Route: 048
     Dates: start: 20200207

REACTIONS (4)
  - Blood creatinine increased [Recovered/Resolved]
  - Dizziness [Recovered/Resolved]
  - Insomnia [Unknown]
  - Haemoglobin decreased [Recovered/Resolved]
